FAERS Safety Report 5417473-8 (Version None)
Quarter: 2007Q3

REPORT INFORMATION
  Report Type: 
  Country: None (occurrence: None)
  Receive Date: 20070816
  Receipt Date: 20070727
  Transmission Date: 20080115
  Serious: Yes (Death)
  Sender: FDA-Public Use
  Company Number: CA-GENENTECH-245369

PATIENT
  Sex: Male

DRUGS (1)
  1. RITUXAN [Suspect]
     Indication: DRUG USE FOR UNKNOWN INDICATION
     Dosage: 800 MG, UNK
     Route: 042
     Dates: start: 20061207, end: 20061228

REACTIONS (1)
  - DEATH [None]
